FAERS Safety Report 7854105-3 (Version None)
Quarter: 2011Q4

REPORT INFORMATION
  Report Type: 
  Country: None (occurrence: None)
  Receive Date: 20111026
  Receipt Date: 20111024
  Transmission Date: 20120403
  Serious: Yes (Hospitalization)
  Sender: FDA-Public Use
  Company Number: SG-SANOFI-AVENTIS-2011SA069786

PATIENT
  Age: 20 Year
  Sex: Female

DRUGS (4)
  1. IBUPROFEN [Suspect]
     Route: 065
  2. AMOXICILLIN [Suspect]
     Route: 065
  3. DANZEN [Suspect]
     Route: 065
  4. METRONIDAZOLE [Suspect]
     Route: 065

REACTIONS (1)
  - EYE SWELLING [None]
